FAERS Safety Report 5961014-3 (Version None)
Quarter: 2008Q4

REPORT INFORMATION
  Report Type: 
  Country: None (occurrence: None)
  Receive Date: 20081121
  Receipt Date: 20080409
  Transmission Date: 20090506
  Serious: No
  Sender: FDA-Public Use
  Company Number: A0721870A

PATIENT
  Age: 57 Year
  Sex: Male

DRUGS (1)
  1. DIGOXIN [Suspect]
     Route: 048

REACTIONS (1)
  - CARDIOACTIVE DRUG LEVEL DECREASED [None]
